FAERS Safety Report 22720450 (Version 7)
Quarter: 2025Q2

REPORT INFORMATION
  Report Type: Spontaneous
  Country: US (occurrence: US)
  Receive Date: 20230719
  Receipt Date: 20250424
  Transmission Date: 20250717
  Serious: No
  Sender: SANOFI AVENTIS
  Company Number: US-SA-SAC20230627000346

PATIENT
  Age: 86 Year
  Sex: Female

DRUGS (2)
  1. DUPIXENT [Suspect]
     Active Substance: DUPILUMAB
     Indication: Dermatitis atopic
     Dosage: 300 MG, QOW
     Route: 058
     Dates: start: 202306, end: 2023
  2. DUPIXENT [Suspect]
     Active Substance: DUPILUMAB
     Dosage: 300 MG, QOW
     Route: 058
     Dates: start: 202312

REACTIONS (16)
  - Hypotension [Unknown]
  - Anaemia [Unknown]
  - Mouth swelling [Unknown]
  - Ear pruritus [Unknown]
  - Dry skin [Unknown]
  - Periorbital swelling [Unknown]
  - Pruritus [Unknown]
  - Dizziness [Unknown]
  - Ocular hyperaemia [Unknown]
  - Eye swelling [Unknown]
  - Headache [Unknown]
  - Skin exfoliation [Unknown]
  - Eye inflammation [Unknown]
  - Eye pruritus [Unknown]
  - Blepharitis [Unknown]
  - Rash [Not Recovered/Not Resolved]

NARRATIVE: CASE EVENT DATE: 20230101
